FAERS Safety Report 7938674-0 (Version None)
Quarter: 2011Q4

REPORT INFORMATION
  Report Type: 
  Country: None (occurrence: None)
  Receive Date: 20111123
  Receipt Date: 20111109
  Transmission Date: 20120403
  Serious: Yes (Disabling)
  Sender: FDA-Public Use
  Company Number: FR-ROCHE-786868

PATIENT
  Sex: Female
  Weight: 75 kg

DRUGS (2)
  1. HERCEPTIN [Suspect]
     Indication: BREAST CANCER
     Route: 042
     Dates: start: 20090908, end: 20100226
  2. HERCEPTIN [Suspect]
     Dosage: THE TREATMENT WAS DEFINITELY STOPPED.

REACTIONS (13)
  - BURNOUT SYNDROME [None]
  - HEADACHE [None]
  - TENDON PAIN [None]
  - MYALGIA [None]
  - DYSPNOEA [None]
  - HEPATOMEGALY [None]
  - PARAESTHESIA [None]
  - DISTURBANCE IN ATTENTION [None]
  - AMNESIA [None]
  - TREMOR [None]
  - HEPATIC PAIN [None]
  - DYSPEPSIA [None]
  - CYSTITIS [None]
